FAERS Safety Report 7108683-2 (Version None)
Quarter: 2010Q4

REPORT INFORMATION
  Report Type: 
  Country: None (occurrence: None)
  Receive Date: 20101117
  Receipt Date: 20101112
  Transmission Date: 20110411
  Serious: Yes (Death, Other)
  Sender: FDA-Public Use
  Company Number: IE-ROCHE-741678

PATIENT
  Age: 84 Year
  Sex: Male

DRUGS (3)
  1. MIRCERA [Suspect]
     Route: 065
     Dates: start: 20090101
  2. MIRCERA [Suspect]
     Route: 065
     Dates: start: 20090101
  3. HYDROXYUREA [Suspect]
     Dosage: FREQUENCY: 5 DAYS PER WEEK
     Route: 065

REACTIONS (4)
  - BONE MARROW FAILURE [None]
  - HAEMOGLOBIN DECREASED [None]
  - NEUTROPENIC SEPSIS [None]
  - THERAPEUTIC RESPONSE DECREASED [None]
